FAERS Safety Report 7127888 (Version 5)
Quarter: 2013Q1

REPORT INFORMATION
  Report Type: Spontaneous
  Country: US (occurrence: US)
  Receive Date: 20090924
  Receipt Date: 20130222
  Transmission Date: 20140127
  Serious: Yes (Other)
  Sender: FDA-Public Use
  Company Number: US-ASTRAZENECA-2009UW03332

PATIENT
  Age: 49 Year
  Sex: Male

DRUGS (3)
  1. SEROQUEL XR [Suspect]
     Route: 048
     Dates: start: 20060601
  2. SEROQUEL XR [Suspect]
     Route: 048
  3. GEODON [Concomitant]

REACTIONS (16)
  - Accident [Unknown]
  - Brain injury [Unknown]
  - Cervical vertebral fracture [Unknown]
  - Insomnia [Unknown]
  - Disturbance in attention [Unknown]
  - Anxiety [Unknown]
  - Insomnia [Unknown]
  - Adverse event [Unknown]
  - Influenza [Unknown]
  - Somnolence [Unknown]
  - Body temperature increased [Unknown]
  - Vomiting [Unknown]
  - Asthenia [Unknown]
  - Intentional drug misuse [Unknown]
  - Circumstance or information capable of leading to medication error [Unknown]
  - Drug dose omission [Unknown]
